FAERS Safety Report 8602642-6 (Version None)
Quarter: 2012Q3

REPORT INFORMATION
  Report Type: 
  Country: None (occurrence: None)
  Receive Date: 20120817
  Receipt Date: 20120813
  Transmission Date: 20120928
  Serious: Yes (Hospitalization)
  Sender: FDA-Public Use
  Company Number: FR-ROCHE-1100023

PATIENT
  Sex: Female
  Weight: 56 kg

DRUGS (8)
  1. TRAMADOL HCL [Concomitant]
     Dates: start: 20120806
  2. ZOFRAN [Concomitant]
     Dates: start: 20120530
  3. HERCEPTIN [Suspect]
     Indication: BREAST CANCER
     Dosage: DATE OF LAST DOSE PRIOR TO SAE: 01/AUG/2012
     Route: 042
     Dates: start: 20120801
  4. DOCETAXEL [Suspect]
     Indication: BREAST CANCER
     Dosage: DATE OF LAST DOSE PRIOR TO SAE : 01/AUG/2012
     Route: 042
     Dates: start: 20120801
  5. ACETAMINOPHEN [Concomitant]
     Dates: start: 20120808
  6. FLUCONAZOLE [Concomitant]
     Dates: start: 20120807
  7. SOLU-MEDROL [Concomitant]
     Dates: start: 20120530
  8. BLINDED PERTUZUMAB [Suspect]
     Indication: BREAST CANCER
     Dosage: DATE OF LAST DOSE RPIOR TO SAE: 01/AUG/2012
     Route: 042
     Dates: start: 20120801

REACTIONS (2)
  - FEBRILE NEUTROPENIA [None]
  - MUCOSAL INFLAMMATION [None]
